FAERS Safety Report 18413877 (Version 1)
Quarter: 2020Q4

REPORT INFORMATION
  Report Type: Spontaneous
  Country: GR (occurrence: GR)
  Receive Date: 20201022
  Receipt Date: 20201022
  Transmission Date: 20210114
  Serious: Yes (Death, Hospitalization)
  Sender: FDA-Public Use
  Company Number: GR-TEVA-2020-GR-1839484

PATIENT
  Age: 65 Year
  Sex: Female

DRUGS (2)
  1. ETANERCEPT [Suspect]
     Active Substance: ETANERCEPT
     Indication: RHEUMATOID ARTHRITIS
     Route: 065
  2. METHOTREXATE. [Suspect]
     Active Substance: METHOTREXATE
     Indication: RHEUMATOID ARTHRITIS
     Route: 065

REACTIONS (10)
  - Acute pulmonary oedema [Fatal]
  - Endocarditis enterococcal [Fatal]
  - Tricuspid valve incompetence [Fatal]
  - Cardiac pseudoaneurysm [Fatal]
  - Fistula [Fatal]
  - Cardiac disorder [Fatal]
  - Endocarditis [Fatal]
  - Hypotension [Fatal]
  - Cardiac failure [Fatal]
  - Mitral valve incompetence [Fatal]
